FAERS Safety Report 7837870-0 (Version None)
Quarter: 2011Q4

REPORT INFORMATION
  Report Type: 
  Country: None (occurrence: None)
  Receive Date: 20111024
  Receipt Date: 20111013
  Transmission Date: 20120403
  Serious: No
  Sender: FDA-Public Use
  Company Number: US-BAYER-2011-099870

PATIENT
  Sex: Male

DRUGS (1)
  1. ULTRAVIST 150 [Suspect]
     Indication: COMPUTERISED TOMOGRAM
     Dosage: 50 ML, ONCE
     Dates: start: 20111011, end: 20111011

REACTIONS (3)
  - NASAL CONGESTION [None]
  - EYE PRURITUS [None]
  - SNEEZING [None]
